FAERS Safety Report 8733665 (Version 6)
Quarter: 2013Q1

REPORT INFORMATION
  Report Type: Spontaneous
  Country: US (occurrence: US)
  Receive Date: 20120821
  Receipt Date: 20130123
  Transmission Date: 20140127
  Serious: Yes (Other)
  Sender: FDA-Public Use
  Company Number: US-AMGEN-USASP2012052007

PATIENT
  Age: 58 Year
  Sex: Female
  Weight: 81.18 kg

DRUGS (1)
  1. ENBREL [Suspect]
     Indication: PSORIASIS
     Dosage: 50 MG, QWK
     Route: 058
     Dates: start: 20031124

REACTIONS (4)
  - Breast cancer [Recovered/Resolved]
  - Therapeutic response decreased [Not Recovered/Not Resolved]
  - Staphylococcal infection [Recovered/Resolved]
  - Injection site pain [Not Recovered/Not Resolved]
